FAERS Safety Report 11520248 (Version 1)
Quarter: 2015Q3

REPORT INFORMATION
  Report Type: Spontaneous
  Country: US (occurrence: US)
  Receive Date: 20150918
  Receipt Date: 20150918
  Transmission Date: 20151125
  Serious: No
  Sender: FDA-Public Use
  Company Number: US-RB-074558-15

PATIENT

DRUGS (1)
  1. MUCINEX [Suspect]
     Active Substance: GUAIFENESIN
     Indication: RESPIRATORY TRACT CONGESTION
     Dosage: 600MG. PRODUCT LAST USED ON 02-FEB-2015 AT 08:00 AM.,BID
     Route: 065
     Dates: start: 20150126

REACTIONS (4)
  - Lacrimation increased [Unknown]
  - Drug ineffective [Not Recovered/Not Resolved]
  - Rhinorrhoea [Unknown]
  - Insomnia [Unknown]
